FAERS Safety Report 12432911 (Version 3)
Quarter: 2021Q4

REPORT INFORMATION
  Report Type: Spontaneous
  Country: FR (occurrence: FR)
  Receive Date: 20160603
  Receipt Date: 20211219
  Transmission Date: 20220303
  Serious: Yes (Disabling, Congenital Anomaly, Other)
  Sender: FDA-Public Use
  Company Number: FR-ABBVIE-16P-056-1642685-00

PATIENT
  Sex: Male

DRUGS (3)
  1. VALPROATE SODIUM [Suspect]
     Active Substance: VALPROATE SODIUM
     Indication: Maternal exposure timing unspecified
     Route: 064
  2. PHENOBARBITAL [Suspect]
     Active Substance: PHENOBARBITAL
     Indication: Maternal exposure timing unspecified
     Route: 064
  3. CLOBAZAM [Suspect]
     Active Substance: CLOBAZAM
     Indication: Maternal exposure timing unspecified
     Route: 064

REACTIONS (24)
  - Hypermetropia [Unknown]
  - Knee deformity [Unknown]
  - Intellectual disability [Unknown]
  - Respiratory tract infection [Unknown]
  - Developmental delay [Unknown]
  - Foetal anticonvulsant syndrome [Unknown]
  - Dysmorphism [Unknown]
  - Autism spectrum disorder [Unknown]
  - Cognitive disorder [Unknown]
  - Psychomotor skills impaired [Unknown]
  - Talipes [Unknown]
  - Infection [Unknown]
  - Stridor [Unknown]
  - Communication disorder [Unknown]
  - Psychomotor retardation [Unknown]
  - Jaundice neonatal [Unknown]
  - Foetal exposure during pregnancy [Unknown]
  - Ear infection [Unknown]
  - Limb deformity [Unknown]
  - Laryngitis [Unknown]
  - Nasal obstruction [Unknown]
  - Muscle tone disorder [Unknown]
  - Pelvic deformity [Unknown]
  - Rhinitis [Unknown]

NARRATIVE: CASE EVENT DATE: 20010622
